FAERS Safety Report 7692540 (Version 2)
Quarter: 2014Q1

REPORT INFORMATION
  Report Type: Spontaneous
  Country: US (occurrence: US)
  Receive Date: 20101206
  Receipt Date: 20140310
  Transmission Date: 20141002
  Serious: Yes (Other)
  Sender: FDA-Public Use
  Company Number: US-BIOGENIDEC-2005BI011879

PATIENT
  Age: 57 Year
  Sex: Female

DRUGS (10)
  1. AVONEX [Suspect]
     Indication: MULTIPLE SCLEROSIS
     Route: 030
     Dates: start: 20011023
  2. AVONEX [Suspect]
     Indication: MULTIPLE SCLEROSIS
     Route: 030
     Dates: start: 200311, end: 200503
  3. AVONEX [Suspect]
     Indication: MULTIPLE SCLEROSIS
     Route: 030
     Dates: start: 200505
  4. PREMARIN [Concomitant]
  5. LIPITOR [Concomitant]
  6. NICOMIDE [Concomitant]
  7. ALLEGRA [Concomitant]
  8. SYNTHROID [Concomitant]
  9. DETROL [Concomitant]
  10. METROGEL [Concomitant]

REACTIONS (11)
  - Idiopathic angioedema [Not Recovered/Not Resolved]
  - Adverse drug reaction [Recovered/Resolved]
  - Allergy to plants [Recovered/Resolved]
  - Influenza [Recovered/Resolved]
  - Tooth resorption [Not Recovered/Not Resolved]
  - Oral pain [Recovered/Resolved]
  - Oral lichen planus [Unknown]
  - Headache [Recovered/Resolved]
  - Influenza like illness [Recovered/Resolved]
  - Fatigue [Recovered/Resolved]
  - Rash [Unknown]
